FAERS Safety Report 4548142-4 (Version None)
Quarter: 2004Q4

REPORT INFORMATION
  Report Type: 
  Country: None (occurrence: None)
  Receive Date: 20041220
  Receipt Date: 20041102
  Transmission Date: 20050328
  Serious: Yes (Other)
  Sender: FDA-Public Use
  Company Number: 2004092052

PATIENT
  Age: 53 Year
  Sex: Female
  Weight: 44.4525 kg

DRUGS (7)
  1. VFEND [Suspect]
     Indication: ASPERGILLOSIS
     Dosage: 400  MG (200 MG, 3 IN 1 D), ORAL
     Route: 048
     Dates: start: 20041022
  2. DEXAMFETAMINE (DEXAMFETAMINE) [Suspect]
     Indication: ILL-DEFINED DISORDER
  3. PANTOPRAZOLE (PANTOPRAZOLE) [Suspect]
     Indication: ILL-DEFINED DISORDER
  4. ACETAMINOPHEN [Concomitant]
  5. FAMOTIDINE [Concomitant]
  6. TRIAMCINOLONE ACETONIDE [Concomitant]
  7. ALPRAZOLA (ALPRAZOLAM) [Concomitant]

REACTIONS (6)
  - CONSTIPATION [None]
  - DIZZINESS [None]
  - DRUG INTERACTION [None]
  - MUSCULAR WEAKNESS [None]
  - NAUSEA [None]
  - TUNNEL VISION [None]
